FAERS Safety Report 5839449-9 (Version None)
Quarter: 2008Q3

REPORT INFORMATION
  Report Type: 
  Country: None (occurrence: None)
  Receive Date: 20080807
  Receipt Date: 20080725
  Transmission Date: 20090109
  Serious: Yes (Hospitalization)
  Sender: FDA-Public Use
  Company Number: 2007002418

PATIENT
  Age: 88 Year
  Sex: Male

DRUGS (12)
  1. ERLOTINIB / PLACEBO (ERLOTINIB HCI) (TABLET) (ERLOTINIB HCI) [Suspect]
     Indication: NON-SMALL CELL LUNG CANCER
     Dosage: 150 MG, QD, ORAL
     Route: 048
     Dates: start: 20070623, end: 20071222
  2. PREDNISOLONE TAB [Concomitant]
  3. FOLIC ACID [Concomitant]
  4. FERROUS SULFATE TAB [Concomitant]
  5. SEREVENT [Concomitant]
  6. SERETIDE (SERETIDE) [Concomitant]
  7. LANSOPRAZOLE [Concomitant]
  8. SALBUTAMOL (SALBUTAMOL) [Concomitant]
  9. ACETAMINOPHEN [Concomitant]
  10. HYDROXOCOBALAMIN (HYDROXOCOBALAMIN) [Concomitant]
  11. COLLAGEN (COLLAGEN) [Concomitant]
  12. SODIUM CHLORIDE [Concomitant]

REACTIONS (28)
  - ALANINE AMINOTRANSFERASE INCREASED [None]
  - ANAEMIA [None]
  - ASTHENIA [None]
  - BLOOD ALKALINE PHOSPHATASE INCREASED [None]
  - BLOOD CREATININE INCREASED [None]
  - BLOOD POTASSIUM INCREASED [None]
  - BLOOD PRESSURE DIASTOLIC DECREASED [None]
  - BLOOD PRESSURE SYSTOLIC INCREASED [None]
  - BLOOD UREA INCREASED [None]
  - CARDIAC DISORDER [None]
  - CONJUNCTIVAL DISORDER [None]
  - CONJUNCTIVAL HYPERAEMIA [None]
  - CONTUSION [None]
  - DEHYDRATION [None]
  - FACIAL BONES FRACTURE [None]
  - FALL [None]
  - FLUID INTAKE REDUCED [None]
  - GAMMA-GLUTAMYLTRANSFERASE INCREASED [None]
  - HYPOPHAGIA [None]
  - LUNG CONSOLIDATION [None]
  - MOBILITY DECREASED [None]
  - OXYGEN SATURATION DECREASED [None]
  - RENAL IMPAIRMENT [None]
  - RESPIRATORY RATE INCREASED [None]
  - SILENT MYOCARDIAL INFARCTION [None]
  - SKIN LACERATION [None]
  - SYNCOPE [None]
  - WHITE BLOOD CELL COUNT INCREASED [None]
